FAERS Safety Report 9508073 (Version 1)
Quarter: 2013Q3

REPORT INFORMATION
  Report Type: Spontaneous
  Country: GB (occurrence: GB)
  Receive Date: 20130909
  Receipt Date: 20130909
  Transmission Date: 20140515
  Serious: Yes (Hospitalization, Other)
  Sender: FDA-Public Use
  Company Number: PHHY2013GB095899

PATIENT
  Age: 63 Year
  Sex: Male

DRUGS (4)
  1. PENICILLIN V POTASSIUM [Suspect]
     Indication: CELLULITIS
     Dosage: 250 MG, QID; (ACUTE COURSE)
     Route: 048
     Dates: start: 20121016, end: 20121112
  2. LAXIDO [Concomitant]
  3. TAMSULOSIN [Concomitant]
  4. LAMOTRIGINE [Concomitant]

REACTIONS (2)
  - Sepsis [Unknown]
  - Treatment failure [Recovered/Resolved]
